FAERS Safety Report 17717342 (Version 1)
Quarter: 2020Q2

REPORT INFORMATION
  Report Type: Spontaneous
  Country: US (occurrence: US)
  Receive Date: 20200427
  Receipt Date: 20200427
  Transmission Date: 20200714
  Serious: No
  Sender: FDA-Public Use
  Company Number: None

PATIENT
  Age: 24 Year
  Sex: Female
  Weight: 53.07 kg

DRUGS (1)
  1. NUVARING [Suspect]
     Active Substance: ETHINYL ESTRADIOL\ETONOGESTREL
     Indication: FEMALE REPRODUCTIVE TRACT DISORDER
     Dosage: ?          OTHER DOSE:0.015MG-0.120MG;?
     Route: 067
     Dates: start: 202001, end: 202004

REACTIONS (3)
  - Dyspareunia [None]
  - Device material issue [None]
  - Muscle spasms [None]

NARRATIVE: CASE EVENT DATE: 20200120
